FAERS Safety Report 13137382 (Version 1)
Quarter: 2017Q1

REPORT INFORMATION
  Report Type: Spontaneous
  Country: US (occurrence: US)
  Receive Date: 20170123
  Receipt Date: 20170123
  Transmission Date: 20170428
  Serious: Yes (Hospitalization, Other)
  Sender: FDA-Public Use
  Company Number: US-AMGEN-USASP2017007790

PATIENT
  Age: 67 Year
  Sex: Male

DRUGS (2)
  1. PROCRIT [Suspect]
     Active Substance: ERYTHROPOIETIN
     Indication: HAEMOGLOBIN DECREASED
     Dosage: UNK
     Route: 065
     Dates: start: 201701
  2. ARANESP [Suspect]
     Active Substance: DARBEPOETIN ALFA
     Indication: HAEMOGLOBIN DECREASED
     Dosage: 300 MUG, Q3MO
     Route: 065
     Dates: start: 2010

REACTIONS (6)
  - Haemoglobin decreased [Unknown]
  - Impaired driving ability [Unknown]
  - Feeling abnormal [Unknown]
  - Angina pectoris [Not Recovered/Not Resolved]
  - Off label use [Unknown]
  - Injection site pain [Unknown]
